FAERS Safety Report 13990732 (Version 2)
Quarter: 2017Q3

REPORT INFORMATION
  Report Type: Report from Study
  Country: JP (occurrence: JP)
  Receive Date: 20170920
  Receipt Date: 20170922
  Transmission Date: 20171128
  Serious: Yes (Other)
  Sender: FDA-Public Use
  Company Number: JP-GLAXOSMITHKLINE-JP2017143622

PATIENT

DRUGS (3)
  1. TAMSULOSIN HYDROCHLORIDE. [Suspect]
     Active Substance: TAMSULOSIN HYDROCHLORIDE
     Indication: HYPERTONIC BLADDER
  2. DUTASTERIDE. [Suspect]
     Active Substance: DUTASTERIDE
     Indication: HYPERTONIC BLADDER
     Dosage: UNK
     Route: 065
  3. IMIDAFENACIN [Suspect]
     Active Substance: IMIDAFENACIN
     Indication: HYPERTONIC BLADDER
     Dosage: UNK

REACTIONS (4)
  - Thirst [Unknown]
  - Erectile dysfunction [Unknown]
  - Vision blurred [Unknown]
  - Constipation [Unknown]
